FAERS Safety Report 9322196 (Version 1)
Quarter: 2013Q2

REPORT INFORMATION
  Report Type: Spontaneous
  Country: US (occurrence: US)
  Receive Date: 20130531
  Receipt Date: 20130531
  Transmission Date: 20140414
  Serious: Yes (Hospitalization)
  Sender: FDA-Public Use
  Company Number: US-JNJFOC-20130513396

PATIENT
  Age: 76 Year
  Sex: Female
  Weight: 56.7 kg

DRUGS (3)
  1. ELMIRON [Suspect]
     Indication: CYSTITIS INTERSTITIAL
     Route: 048
     Dates: start: 201301, end: 201305
  2. LISINOPRIL [Concomitant]
     Indication: BLOOD PRESSURE
     Route: 048
  3. ASPIRIN [Concomitant]
     Indication: ISCHAEMIC HEART DISEASE PROPHYLAXIS
     Route: 048

REACTIONS (3)
  - Fall [Recovered/Resolved]
  - Femur fracture [Unknown]
  - Wrong technique in drug usage process [Unknown]
